FAERS Safety Report 7684646-3 (Version None)
Quarter: 2011Q3

REPORT INFORMATION
  Report Type: 
  Country: None (occurrence: None)
  Receive Date: 20110816
  Receipt Date: 20110808
  Transmission Date: 20111222
  Serious: No
  Sender: FDA-Public Use
  Company Number: US-BIOGENIDEC-2011BI030073

PATIENT
  Age: 37 Year
  Sex: Female

DRUGS (5)
  1. AVONEX [Suspect]
     Route: 030
     Dates: start: 20060914, end: 20070601
  2. AVONEX [Suspect]
     Route: 030
     Dates: start: 20020325, end: 20030307
  3. AVONEX [Suspect]
     Indication: MULTIPLE SCLEROSIS
     Route: 030
     Dates: start: 20100423
  4. AVONEX [Suspect]
     Route: 030
     Dates: start: 20081031, end: 20090701
  5. AVONEX [Suspect]
     Route: 030
     Dates: start: 20051028, end: 20060615

REACTIONS (7)
  - VERTIGO [None]
  - PSYCHOMOTOR HYPERACTIVITY [None]
  - INFLUENZA LIKE ILLNESS [None]
  - PAIN IN EXTREMITY [None]
  - BONE PAIN [None]
  - MULTIPLE SCLEROSIS RELAPSE [None]
  - SINUSITIS [None]
